FAERS Safety Report 15684995 (Version 1)
Quarter: 2018Q4

REPORT INFORMATION
  Report Type: Spontaneous
  Country: US (occurrence: US)
  Receive Date: 20181204
  Receipt Date: 20181204
  Transmission Date: 20190205
  Serious: Yes (Hospitalization)
  Sender: FDA-Public Use
  Company Number: US-VALIDUS PHARMACEUTICALS LLC-US-2018VAL000983

PATIENT
  Sex: Male
  Weight: 77.55 kg

DRUGS (5)
  1. INLYTA [Suspect]
     Active Substance: AXITINIB
     Indication: RENAL CANCER
     Dosage: 5 MG, EVERY 12 HOUR
  2. METOPROLOL TARTRATE. [Suspect]
     Active Substance: METOPROLOL TARTRATE
     Dosage: 25 MG, QD
  3. METOPROLOL TARTRATE. [Suspect]
     Active Substance: METOPROLOL TARTRATE
     Indication: BLOOD PRESSURE MANAGEMENT
     Dosage: 25 MG, BID (ONE IN THE MORNING AND ONE AT NIGHT)
  4. BUMEX [Suspect]
     Active Substance: BUMETANIDE
     Indication: PRODUCT USED FOR UNKNOWN INDICATION
     Dosage: 2 MG, BID (ONE IN THE MORNING AND ONE AT NIGHT)
  5. INLYTA [Suspect]
     Active Substance: AXITINIB
     Indication: LYMPHOMA

REACTIONS (2)
  - Dehydration [Recovered/Resolved]
  - Loss of consciousness [Recovered/Resolved]
